FAERS Safety Report 7338900-5 (Version None)
Quarter: 2011Q1

REPORT INFORMATION
  Report Type: 
  Country: None (occurrence: None)
  Receive Date: 20110308
  Receipt Date: 20110224
  Transmission Date: 20110831
  Serious: Yes (Other)
  Sender: FDA-Public Use
  Company Number: US-ASTRAZENECA-2011SE10432

PATIENT
  Age: 23 Year
  Sex: Female

DRUGS (4)
  1. SEROQUEL [Suspect]
     Indication: DEPRESSION
     Route: 048
  2. SEROQUEL [Suspect]
     Indication: BIPOLAR DISORDER
     Route: 048
  3. CYMBALTA [Suspect]
     Indication: BIPOLAR DISORDER
     Route: 048
  4. CYMBALTA [Suspect]
     Indication: DEPRESSION
     Route: 048

REACTIONS (5)
  - BIPOLAR DISORDER [None]
  - UNEMPLOYMENT [None]
  - DEPRESSION [None]
  - LOSS OF CONSCIOUSNESS [None]
  - DRUG INEFFECTIVE [None]
